FAERS Safety Report 10156643 (Version 1)
Quarter: 2014Q2

REPORT INFORMATION
  Report Type: Spontaneous
  Country: US (occurrence: None)
  Receive Date: 20140505
  Receipt Date: 20140505
  Transmission Date: 20141212
  Serious: Yes (Other)
  Sender: FDA-Public Use
  Company Number: 14-01065

PATIENT
  Sex: 0

DRUGS (1)
  1. ASTHMANEFRIN [Suspect]
     Indication: ASTHMA

REACTIONS (1)
  - Asthma [None]
